FAERS Safety Report 6936917-3 (Version None)
Quarter: 2010Q3

REPORT INFORMATION
  Report Type: 
  Country: None (occurrence: None)
  Receive Date: 20100823
  Receipt Date: 20100818
  Transmission Date: 20110219
  Serious: Yes (Death, Other)
  Sender: FDA-Public Use
  Company Number: FR-BRISTOL-MYERS SQUIBB COMPANY-15246028

PATIENT
  Age: 80 Year
  Sex: Female

DRUGS (15)
  1. APROVEL TABS 150 MG [Suspect]
     Dosage: 1DF=1/2 TABLET DAILY.
     Route: 048
     Dates: start: 20100105
  2. FURADANTINE [Suspect]
     Dosage: CAPSULE.
     Route: 048
     Dates: start: 20100121, end: 20100727
  3. METOJECT [Suspect]
     Dosage: STRENGTH-10 MG/ML .
     Route: 030
     Dates: start: 20050101, end: 20100716
  4. SECTRAL [Suspect]
     Dosage: 1 COATED TABLET
     Route: 048
     Dates: start: 20100105
  5. LASIX [Suspect]
     Dosage: 1/2 SCORED TABLET
     Route: 048
     Dates: start: 20100105, end: 20100710
  6. BETAHISTINE [Suspect]
     Route: 048
     Dates: start: 20100105
  7. TARDYFERON [Suspect]
     Dosage: 1 COATED TABLET
     Route: 048
     Dates: start: 20100620
  8. IMOVANE [Suspect]
     Dosage: 1DF=1/2 INTAKE DAILY
     Route: 048
     Dates: start: 20100630
  9. PREVISCAN [Suspect]
     Dosage: SCORED TABLET, ALSO TAKEN AS 0.75 UNIT NOT SPECIFIED DAILY
     Route: 048
     Dates: start: 20100707
  10. RABEPRAZOLE SODIUM [Suspect]
     Dosage: 1 GASTRO-RESISTANT TABLET
     Route: 048
     Dates: start: 20100713
  11. ATHYMIL [Suspect]
     Dosage: 1 SCORED TABLET
     Route: 048
     Dates: start: 20100716
  12. CALCIPARINE [Concomitant]
     Indication: DEEP VEIN THROMBOSIS
     Dosage: 1DF= 0.2 ML PREVENTIVE THEN 0.6 ML CURATIVE.
     Dates: start: 20100601, end: 20100701
  13. DIFFU-K [Concomitant]
     Dosage: WITHDRAWN ON 05-JUL-2010
     Dates: start: 20100601, end: 20100705
  14. LAMALINE [Concomitant]
     Dosage: TABLETS
     Dates: start: 20100601, end: 20100701
  15. MEMANTINE HCL [Concomitant]

REACTIONS (3)
  - HUMERUS FRACTURE [None]
  - INTERSTITIAL LUNG DISEASE [None]
  - URINARY TRACT INFECTION [None]
